FAERS Safety Report 19396751 (Version 2)
Quarter: 2021Q2

REPORT INFORMATION
  Report Type: Report from Study
  Country: JP (occurrence: JP)
  Receive Date: 20210609
  Receipt Date: 20210618
  Transmission Date: 20210717
  Serious: Yes (Other)
  Sender: FDA-Public Use
  Company Number: JP-TEVA-2021-JP-1922107

PATIENT
  Age: 90 Year
  Sex: Female

DRUGS (8)
  1. LEVODOPA [Concomitant]
     Active Substance: LEVODOPA
     Route: 065
  2. COMTAN [Concomitant]
     Active Substance: ENTACAPONE
     Route: 065
  3. AMITIZA [Concomitant]
     Active Substance: LUBIPROSTONE
     Route: 065
  4. FERRUM [Concomitant]
     Active Substance: FERROUS FUMARATE
     Route: 065
  5. CILOSTAZOL. [Concomitant]
     Active Substance: CILOSTAZOL
     Route: 065
  6. ATELEC [Concomitant]
     Active Substance: CILNIDIPINE
     Route: 065
  7. RASAGILINE MESYLATE. [Suspect]
     Active Substance: RASAGILINE MESYLATE
     Indication: PARKINSON^S DISEASE
     Dosage: 1 MILLIGRAM DAILY; LAST DOSE: 29?JUL?2019
     Route: 065
     Dates: start: 20190619, end: 20190729
  8. NOURIAST [Concomitant]
     Active Substance: ISTRADEFYLLINE
     Route: 065

REACTIONS (3)
  - Condition aggravated [Not Recovered/Not Resolved]
  - Fall [Recovering/Resolving]
  - Hallucination, visual [Not Recovered/Not Resolved]

NARRATIVE: CASE EVENT DATE: 20190722
